FAERS Safety Report 9407517 (Version 1)
Quarter: 2013Q3

REPORT INFORMATION
  Report Type: Spontaneous
  Country: FR (occurrence: FR)
  Receive Date: 20130718
  Receipt Date: 20130718
  Transmission Date: 20140515
  Serious: Yes (Hospitalization)
  Sender: FDA-Public Use
  Company Number: FR-JNJFOC-20130707197

PATIENT
  Age: 47 Year
  Sex: Male

DRUGS (3)
  1. XARELTO [Suspect]
     Indication: EMBOLISM VENOUS
     Route: 048
     Dates: start: 201208, end: 201301
  2. XARELTO [Suspect]
     Indication: DEEP VEIN THROMBOSIS
     Route: 048
     Dates: start: 201208, end: 201301
  3. ARIXTRA [Concomitant]
     Route: 065
     Dates: start: 2013

REACTIONS (2)
  - Hypoaesthesia [Not Recovered/Not Resolved]
  - Dysaesthesia [Not Recovered/Not Resolved]
